FAERS Safety Report 9314911 (Version 1)
Quarter: 2013Q2

REPORT INFORMATION
  Report Type: Spontaneous
  Country: US (occurrence: US)
  Receive Date: 20130529
  Receipt Date: 20130529
  Transmission Date: 20140414
  Serious: Yes (Hospitalization, Other)
  Sender: FDA-Public Use
  Company Number: US-BAYER-2013-063352

PATIENT
  Age: 93 Year
  Sex: Female

DRUGS (1)
  1. BAYER GENUINE ASPIRIN ORIGINAL STRENGTH [Suspect]

REACTIONS (4)
  - VIIth nerve paralysis [Recovered/Resolved]
  - VIIth nerve paralysis [Recovered/Resolved]
  - Accelerated hypertension [Recovered/Resolved]
  - Thalamus haemorrhage [Recovered/Resolved]
